FAERS Safety Report 5418190-0 (Version None)
Quarter: 2007Q3

REPORT INFORMATION
  Report Type: 
  Country: None (occurrence: None)
  Receive Date: 20070817
  Receipt Date: 20070810
  Transmission Date: 20080115
  Serious: Yes (Death, Congenital Anomaly, Other)
  Sender: FDA-Public Use
  Company Number: AU-ELI_LILLY_AND_COMPANY-AU97075959A

PATIENT

DRUGS (2)
  1. HUMALOG [Suspect]
     Dosage: UNK, UNKNOWN
  2. NPH INSULIN [Concomitant]
     Dosage: UNK, UNKNOWN

REACTIONS (3)
  - GASTROINTESTINAL MALFORMATION [None]
  - HEART DISEASE CONGENITAL [None]
  - MULTIPLE CONGENITAL ABNORMALITIES [None]
